FAERS Safety Report 7051678-8 (Version None)
Quarter: 2010Q4

REPORT INFORMATION
  Report Type: 
  Country: None (occurrence: None)
  Receive Date: 20101012
  Receipt Date: 20101001
  Transmission Date: 20110411
  Serious: Yes (Hospitalization)
  Sender: FDA-Public Use
  Company Number: 2010100002

PATIENT
  Age: 67 Year
  Sex: Male

DRUGS (3)
  1. ONSOLIS [Suspect]
     Indication: CANCER PAIN
     Dosage: TITRATE UP TO 4-200 MCG/DOSE (UP TO 4 TIMES DAILY),BU
     Route: 002
     Dates: start: 20100618
  2. HYDROMORPHONE HCL [Concomitant]
  3. METHADONE HCL [Concomitant]

REACTIONS (2)
  - SCAR [None]
  - SMALL INTESTINAL OBSTRUCTION [None]
